FAERS Safety Report 14444595 (Version 4)
Quarter: 2020Q1

REPORT INFORMATION
  Report Type: Spontaneous
  Country: JP (occurrence: JP)
  Receive Date: 20180126
  Receipt Date: 20200305
  Transmission Date: 20200409
  Serious: Yes (Hospitalization, Other)
  Sender: FDA-Public Use
  Company Number: JP-ASTELLAS-2018JP001222

PATIENT
  Age: 48 Year
  Sex: Female

DRUGS (20)
  1. TACROLIMUS. [Suspect]
     Active Substance: TACROLIMUS
     Dosage: UNK UNK, UNKNOWN FREQ.
     Route: 065
  2. VERAPAMIL [Concomitant]
     Active Substance: VERAPAMIL HYDROCHLORIDE
     Indication: REVERSIBLE CEREBRAL VASOCONSTRICTION SYNDROME
     Dosage: UNK UNK, UNKNOWN FREQ.
     Route: 065
  3. BASILIXIMAB [Concomitant]
     Active Substance: BASILIXIMAB
     Indication: IMMUNOSUPPRESSION
     Dosage: UNK UNK, UNKNOWN FREQ.
     Route: 065
  4. TACROLIMUS. [Suspect]
     Active Substance: TACROLIMUS
     Dosage: UNK UNK, UNKNOWN FREQ.
     Route: 065
  5. TACROLIMUS. [Suspect]
     Active Substance: TACROLIMUS
     Dosage: UNK UNK, UNKNOWN FREQ.
     Route: 065
  6. TACROLIMUS. [Suspect]
     Active Substance: TACROLIMUS
     Dosage: UNK UNK, UNKNOWN FREQ.
     Route: 065
  7. ARGATROBAN. [Concomitant]
     Active Substance: ARGATROBAN
     Indication: REVERSIBLE CEREBRAL VASOCONSTRICTION SYNDROME
     Dosage: UNK UNK, UNKNOWN FREQ.
     Route: 042
  8. CICLOSPORIN [Concomitant]
     Active Substance: CYCLOSPORINE
     Indication: PRODUCT USED FOR UNKNOWN INDICATION
     Dosage: UNK UNK, UNKNOWN FREQ.
     Route: 065
  9. TACROLIMUS. [Suspect]
     Active Substance: TACROLIMUS
     Dosage: UNK UNK, UNKNOWN FREQ.
     Route: 065
  10. TACROLIMUS. [Suspect]
     Active Substance: TACROLIMUS
     Dosage: UNK UNK, UNKNOWN FREQ.
     Route: 065
  11. MICOFENOLATO MOFETIL [Suspect]
     Active Substance: MYCOPHENOLATE MOFETIL
     Indication: IMMUNOSUPPRESSANT DRUG THERAPY
     Dosage: 1 G/DAY, UNKNOWN FREQ.
     Route: 065
  12. DEXTRAN [Concomitant]
     Active Substance: DEXTRAN
     Indication: REVERSIBLE CEREBRAL VASOCONSTRICTION SYNDROME
     Dosage: UNK UNK, UNKNOWN FREQ.
     Route: 065
  13. TACROLIMUS. [Suspect]
     Active Substance: TACROLIMUS
     Dosage: UNK UNK, UNKNOWN FREQ.
     Route: 065
  14. MAGNESIUM SULPHATE [MAGNESIUM SULFATE] [Concomitant]
     Active Substance: MAGNESIUM SULFATE
     Indication: REVERSIBLE CEREBRAL VASOCONSTRICTION SYNDROME
     Dosage: UNK UNK, UNKNOWN FREQ.
     Route: 065
  15. TACROLIMUS. [Suspect]
     Active Substance: TACROLIMUS
     Dosage: UNK UNK, UNKNOWN FREQ.
     Route: 065
  16. TACROLIMUS. [Suspect]
     Active Substance: TACROLIMUS
     Dosage: UNK UNK, UNKNOWN FREQ.
     Route: 065
  17. TACROLIMUS. [Suspect]
     Active Substance: TACROLIMUS
     Dosage: UNK UNK, UNKNOWN FREQ.
     Route: 065
  18. TACROLIMUS. [Suspect]
     Active Substance: TACROLIMUS
     Indication: IMMUNOSUPPRESSANT DRUG THERAPY
     Dosage: 2 MG/DAY, UNKNOWN FREQ., 2MG
     Route: 065
  19. NICARDIPINE HYDROCHLORIDE. [Concomitant]
     Active Substance: NICARDIPINE HYDROCHLORIDE
     Indication: REVERSIBLE CEREBRAL VASOCONSTRICTION SYNDROME
     Dosage: UNK UNK, UNKNOWN FREQ.
     Route: 041
  20. MILRINONE [Suspect]
     Active Substance: MILRINONE
     Indication: REVERSIBLE CEREBRAL VASOCONSTRICTION SYNDROME
     Dosage: UNK UNK, CONTINUOUS
     Route: 041

REACTIONS (2)
  - Off label use [Unknown]
  - Reversible cerebral vasoconstriction syndrome [Recovering/Resolving]
